FAERS Safety Report 11115785 (Version 1)
Quarter: 2015Q2

REPORT INFORMATION
  Report Type: Spontaneous
  Country: US (occurrence: US)
  Receive Date: 20150515
  Receipt Date: 20150515
  Transmission Date: 20150821
  Serious: Yes (Other)
  Sender: FDA-Public Use
  Company Number: US-BAYER-2015-229846

PATIENT
  Age: 59 Year
  Sex: Male

DRUGS (2)
  1. ULTRAVIST [Suspect]
     Active Substance: IOPROMIDE
     Indication: COMPUTERISED TOMOGRAM ABDOMEN
  2. ULTRAVIST [Suspect]
     Active Substance: IOPROMIDE
     Indication: COMPUTERISED TOMOGRAM PELVIS
     Dosage: 100 ML, ONCE
     Route: 042
     Dates: start: 20150513, end: 20150513

REACTIONS (3)
  - Oropharyngeal swelling [Recovered/Resolved]
  - Dysphonia [Recovered/Resolved]
  - Urticaria [None]

NARRATIVE: CASE EVENT DATE: 20150513
